FAERS Safety Report 15634140 (Version 1)
Quarter: 2018Q4

REPORT INFORMATION
  Report Type: Spontaneous
  Country: US (occurrence: US)
  Receive Date: 20181119
  Receipt Date: 20181119
  Transmission Date: 20190205
  Serious: Yes (Life-Threatening)
  Sender: FDA-Public Use
  Company Number: US-OTSUKA-2018_036474

PATIENT
  Age: 94 Year
  Sex: Female

DRUGS (1)
  1. SAMSCA [Suspect]
     Active Substance: TOLVAPTAN
     Indication: FLUID RETENTION
     Dosage: 15 MG, QD
     Route: 048
     Dates: start: 20181108, end: 20181108

REACTIONS (3)
  - Medication error [Unknown]
  - Apparent death [Not Recovered/Not Resolved]
  - Hypernatraemia [Not Recovered/Not Resolved]
